FAERS Safety Report 14295470 (Version 2)
Quarter: 2018Q1

REPORT INFORMATION
  Report Type: Spontaneous
  Country: US (occurrence: US)
  Receive Date: 20171218
  Receipt Date: 20180320
  Transmission Date: 20180509
  Serious: No
  Sender: FDA-Public Use
  Company Number: US-PFIZER INC-2017534624

PATIENT
  Age: 69 Year
  Sex: Male
  Weight: 105 kg

DRUGS (3)
  1. METHOTREXATE. [Concomitant]
     Active Substance: METHOTREXATE
     Indication: RHEUMATOID ARTHRITIS
     Dosage: 15 MG, WEEKLY (ON SUNDAY NIGHT, WEEKLY)
     Dates: start: 2007
  2. XELJANZ XR [Suspect]
     Active Substance: TOFACITINIB CITRATE
     Indication: RHEUMATOID ARTHRITIS
     Dosage: 11 MG, 1X/DAY
     Route: 048
     Dates: start: 201710
  3. FOLIC ACID. [Concomitant]
     Active Substance: FOLIC ACID
     Indication: SUPPLEMENTATION THERAPY
     Dosage: 2 MG, 1X/DAY
     Dates: start: 2007

REACTIONS (4)
  - Lip blister [Recovering/Resolving]
  - Infection [Unknown]
  - Stomatitis [Recovering/Resolving]
  - Immune system disorder [Unknown]

NARRATIVE: CASE EVENT DATE: 201711
